FAERS Safety Report 10539124 (Version 2)
Quarter: 2014Q4

REPORT INFORMATION
  Report Type: Spontaneous
  Country: US (occurrence: US)
  Receive Date: 20141023
  Receipt Date: 20141029
  Transmission Date: 20150529
  Serious: Yes (Death, Hospitalization)
  Sender: FDA-Public Use
  Company Number: US-MERCK-1410USA011191

PATIENT
  Age: 66 Year
  Sex: Female

DRUGS (1)
  1. NOXAFIL [Suspect]
     Active Substance: POSACONAZOLE
     Dosage: 100 MG, T THREE TIMES DAILY
     Route: 048

REACTIONS (2)
  - Death [Fatal]
  - Adverse event [Unknown]

NARRATIVE: CASE EVENT DATE: 20141006
